FAERS Safety Report 11849416 (Version 2)
Quarter: 2015Q4

REPORT INFORMATION
  Report Type: Report from Study
  Country: FR (occurrence: FR)
  Receive Date: 20151218
  Receipt Date: 20151221
  Transmission Date: 20160305
  Serious: Yes (Death, Other)
  Sender: FDA-Public Use
  Company Number: FR-B.I. PHARMACEUTICALS,INC./RIDGEFIELD-2015-BI-69097II

PATIENT
  Age: 56 Year
  Sex: Male

DRUGS (2)
  1. BIBW 2992 [Suspect]
     Active Substance: AFATINIB
     Indication: COLORECTAL CANCER METASTATIC
     Dosage: LAST DOSE ADMINISTRED BEFORE SAE:30MG, CUMULATIVE DOSE SINCE THE 1ST ADMINISTRATION: 870MG
     Route: 048
     Dates: start: 20150114, end: 20150204
  2. ERBITUX [Suspect]
     Active Substance: CETUXIMAB
     Indication: PRODUCT USED FOR UNKNOWN INDICATION
     Dosage: LAST DOSE ADMINISTRED BEFORE SAE:870MG, CUMULATIVE DOSE SINCE THE 1ST ADMINISTRATION: 1755MG
     Route: 042
     Dates: start: 20150114, end: 20150204

REACTIONS (6)
  - Neoplasm progression [Fatal]
  - Aspartate aminotransferase increased [Not Recovered/Not Resolved]
  - Blood alkaline phosphatase increased [Not Recovered/Not Resolved]
  - Gamma-glutamyltransferase increased [Not Recovered/Not Resolved]
  - Alanine aminotransferase increased [Not Recovered/Not Resolved]
  - Gastrointestinal toxicity [Recovered/Resolved]

NARRATIVE: CASE EVENT DATE: 201501
